FAERS Safety Report 15899495 (Version 2)
Quarter: 2019Q1

REPORT INFORMATION
  Report Type: Spontaneous
  Country: JP (occurrence: JP)
  Receive Date: 20190201
  Receipt Date: 20190214
  Transmission Date: 20190417
  Serious: Yes (Hospitalization, Congenital Anomaly, Other)
  Sender: FDA-Public Use
  Company Number: JP-UCBSA-2019003150

PATIENT
  Age: 0 Year
  Weight: 2.04 kg

DRUGS (4)
  1. VITAMIN D [Concomitant]
     Active Substance: CHOLECALCIFEROL
     Indication: NUTRITIONAL SUPPLEMENTATION
     Route: 064
  2. E KEPPRA [Suspect]
     Active Substance: LEVETIRACETAM
     Dosage: 500 MG AND 250 MG, 2X/DAY (BID)
     Route: 064
     Dates: start: 20180828, end: 20180907
  3. FOLIC ACID. [Concomitant]
     Active Substance: FOLIC ACID
     Indication: NUTRITIONAL SUPPLEMENTATION
     Route: 064
  4. E KEPPRA [Suspect]
     Active Substance: LEVETIRACETAM
     Indication: EPILEPSY
     Dosage: 500 MG, ONCE DAILY (QD)
     Route: 064
     Dates: start: 201801, end: 20180827

REACTIONS (4)
  - Cleft lip [Recovering/Resolving]
  - Foetal growth restriction [Recovering/Resolving]
  - Foetal exposure during pregnancy [Unknown]
  - Low birth weight baby [Recovering/Resolving]

NARRATIVE: CASE EVENT DATE: 201801
